FAERS Safety Report 14610869 (Version 2)
Quarter: 2018Q1

REPORT INFORMATION
  Report Type: Report from Study
  Country: US (occurrence: US)
  Receive Date: 20180308
  Receipt Date: 20180313
  Transmission Date: 20180509
  Serious: No
  Sender: FDA-Public Use
  Company Number: US-ASTRAZENECA-2018SE24172

PATIENT
  Age: 27253 Day
  Sex: Female

DRUGS (2)
  1. CALQUENCE [Suspect]
     Active Substance: ACALABRUTINIB
     Indication: MANTLE CELL LYMPHOMA
     Route: 048
     Dates: start: 20180213
  2. CALQUENCE [Suspect]
     Active Substance: ACALABRUTINIB
     Indication: MANTLE CELL LYMPHOMA
     Route: 048
     Dates: start: 20180302

REACTIONS (17)
  - Proctalgia [Unknown]
  - Abdominal distension [Recovered/Resolved]
  - Joint swelling [Unknown]
  - Headache [Recovered/Resolved]
  - Chromaturia [Recovered/Resolved]
  - Retching [Recovered/Resolved]
  - Insomnia [Recovered/Resolved]
  - Pain [Unknown]
  - Gastrointestinal pain [Unknown]
  - Nausea [Unknown]
  - Abdominal pain upper [Unknown]
  - Abdominal pain [Recovered/Resolved]
  - Myalgia [Recovered/Resolved]
  - Dysuria [Recovered/Resolved]
  - Dyspnoea [Recovering/Resolving]
  - Vomiting [Unknown]
  - Blood urine present [Recovered/Resolved]

NARRATIVE: CASE EVENT DATE: 20180214
